FAERS Safety Report 8035931-7 (Version None)
Quarter: 2012Q1

REPORT INFORMATION
  Report Type: 
  Country: None (occurrence: None)
  Receive Date: 20120111
  Receipt Date: 20111229
  Transmission Date: 20120608
  Serious: Yes (Hospitalization)
  Sender: FDA-Public Use
  Company Number: US-WATSON-2011-23110

PATIENT
  Age: 53 Year
  Sex: Male

DRUGS (7)
  1. CEPHALOTHIN                        /00010901/ [Suspect]
     Indication: SUBACUTE ENDOCARDITIS
     Dosage: UNK
  2. ERYTHROMYCIN [Suspect]
     Dosage: 4 G, DAILY
     Dates: start: 19770727, end: 19770801
  3. AMPICILLIN [Suspect]
     Indication: SUBACUTE ENDOCARDITIS
     Dosage: 8 G, DAILY
  4. ERYTHROMYCIN [Suspect]
     Indication: SUBACUTE ENDOCARDITIS
     Dosage: 6 G, DAILY
     Dates: start: 19770801, end: 19770808
  5. STREPTOMYCIN [Suspect]
     Indication: SUBACUTE ENDOCARDITIS
     Dosage: UNK
  6. VANCOMYCIN [Suspect]
     Indication: SUBACUTE ENDOCARDITIS
     Dosage: UNK
  7. ERYTHROMYCIN [Suspect]
     Dosage: 6 G, DAILY
     Dates: start: 19761201, end: 19770101

REACTIONS (6)
  - RASH ERYTHEMATOUS [None]
  - EOSINOPHILIA [None]
  - DEAFNESS BILATERAL [None]
  - RASH MACULO-PAPULAR [None]
  - PRURITUS [None]
  - BLOOD CREATININE INCREASED [None]
